FAERS Safety Report 8805401 (Version 1)
Quarter: 2012Q4

REPORT INFORMATION
  Report Type: 
  Country: PE (occurrence: PE)
  Receive Date: 20120924
  Receipt Date: 20120924
  Transmission Date: 20130627
  Serious: Yes (Death, Hospitalization)
  Sender: FDA-Public Use
  Company Number: PHHO2004PE13328

PATIENT
  Age: 60 Year
  Sex: Male

DRUGS (2)
  1. GLIVEC [Suspect]
     Indication: GASTROINTESTINAL STROMAL TUMOUR
     Dosage: 600 mg, QD
     Route: 048
     Dates: start: 20040623, end: 20040815
  2. GLIVEC [Suspect]
     Dosage: 300 mg, QD
     Route: 048
     Dates: start: 20040816

REACTIONS (4)
  - Septic shock [Fatal]
  - Bronchopneumonia [Fatal]
  - Neoplasm progression [Fatal]
  - Malignant neoplasm progression [Fatal]
